FAERS Safety Report 9498802 (Version 1)
Quarter: 2013Q3

REPORT INFORMATION
  Report Type: Report from Study
  Country: CA (occurrence: CA)
  Receive Date: 20130904
  Receipt Date: 20130904
  Transmission Date: 20140515
  Serious: Yes (Other)
  Sender: FDA-Public Use
  Company Number: CA-ROCHE-1270006

PATIENT
  Age: 53 Year
  Sex: Female

DRUGS (13)
  1. RITUXAN [Suspect]
     Indication: RHEUMATOID ARTHRITIS
     Dosage: FREQUENCY: DAY 1 AND 15
     Route: 042
     Dates: start: 20090303
  2. METHOTREXATE [Concomitant]
     Route: 048
  3. MEDROL [Concomitant]
     Route: 048
  4. FOLIC ACID [Concomitant]
  5. ALENDRONATE [Concomitant]
  6. VENTOLIN [Concomitant]
     Route: 065
  7. GARLIC [Concomitant]
     Route: 065
  8. OMEGA 3 [Concomitant]
     Route: 065
  9. CIDER VINEGAR [Concomitant]
     Route: 065
  10. VITAMIN C [Concomitant]
     Route: 065
  11. DIPHENHYDRAMINE HCL [Concomitant]
     Indication: PREMEDICATION
     Route: 048
     Dates: start: 20100811
  12. ACETAMINOPHEN [Concomitant]
     Indication: PREMEDICATION
     Route: 048
     Dates: start: 20100811
  13. METHYLPREDNISOLONE [Concomitant]
     Indication: PREMEDICATION
     Route: 042
     Dates: start: 20100811

REACTIONS (1)
  - Intracranial pressure increased [Recovered/Resolved]
